FAERS Safety Report 15542112 (Version 2)
Quarter: 2019Q1

REPORT INFORMATION
  Report Type: Report from Study
  Country: US (occurrence: US)
  Receive Date: 20181023
  Receipt Date: 20190118
  Transmission Date: 20190417
  Serious: Yes (Other)
  Sender: FDA-Public Use
  Company Number: US-SA-2018SA284376

PATIENT
  Age: 53 Year
  Sex: Male

DRUGS (1)
  1. INSULIN GLULISINE [Suspect]
     Active Substance: INSULIN GLULISINE
     Indication: DIABETES MELLITUS
     Dosage: MIDNIGHT TO 3 AM- 0.4 UNITS, 3AM TO 8AM- 0.7 UNITS, 8AM TO 4PM- 1.2 UNITS, 4P TO 9P- 1.0 UNITS, 9P T
     Route: 058

REACTIONS (6)
  - Blood glucose increased [Recovered/Resolved]
  - Loss of consciousness [Recovered/Resolved]
  - Speech disorder [Recovered/Resolved]
  - Muscle spasms [Recovered/Resolved]
  - Gait inability [Recovered/Resolved]
  - Blood glucose decreased [Recovered/Resolved]
